FAERS Safety Report 16668581 (Version 1)
Quarter: 2019Q3

REPORT INFORMATION
  Report Type: Spontaneous
  Country: US (occurrence: US)
  Receive Date: 20190804
  Receipt Date: 20190804
  Transmission Date: 20191004
  Serious: No
  Sender: FDA-Public Use
  Company Number: None

PATIENT
  Age: 10 Year
  Sex: Male
  Weight: 38.25 kg

DRUGS (1)
  1. GUANFACINE HCL ER 2MG [Suspect]
     Active Substance: GUANFACINE HYDROCHLORIDE
     Indication: ANGER
     Dosage: ?          QUANTITY:1 TABLET(S);?
     Route: 048
     Dates: start: 20190321

REACTIONS (12)
  - Flat affect [None]
  - Listless [None]
  - Anger [None]
  - Dizziness [None]
  - Fatigue [None]
  - Malaise [None]
  - Heart rate increased [None]
  - Lip dry [None]
  - Coordination abnormal [None]
  - Visual impairment [None]
  - Sedation [None]
  - Asthenia [None]

NARRATIVE: CASE EVENT DATE: 20190330
